FAERS Safety Report 17425672 (Version 1)
Quarter: 2020Q1

REPORT INFORMATION
  Report Type: Spontaneous
  Country: KR (occurrence: KR)
  Receive Date: 20200217
  Receipt Date: 20200217
  Transmission Date: 20200409
  Serious: Yes (Hospitalization)
  Sender: FDA-Public Use
  Company Number: KR-PFIZER INC-2020057076

PATIENT
  Age: 62 Year
  Sex: Male

DRUGS (16)
  1. IRINOTECAN HCL [Suspect]
     Active Substance: IRINOTECAN HYDROCHLORIDE
     Indication: PANCREATIC CARCINOMA
     Dosage: 135 MG/M2, CYCLIC (135 MG/M2 ON DAY 1)
  2. OXALIPLATIN. [Suspect]
     Active Substance: OXALIPLATIN
     Indication: METASTASES TO LIVER
  3. FLUOROURACIL 5 FU [Suspect]
     Active Substance: FLUOROURACIL
     Indication: PALLIATIVE CARE
  4. IRINOTECAN HCL [Suspect]
     Active Substance: IRINOTECAN HYDROCHLORIDE
     Indication: METASTASES TO LUNG
  5. FLUOROURACIL 5 FU [Suspect]
     Active Substance: FLUOROURACIL
     Indication: METASTASES TO LIVER
  6. IRINOTECAN HCL [Suspect]
     Active Substance: IRINOTECAN HYDROCHLORIDE
     Indication: PALLIATIVE CARE
  7. OXALIPLATIN. [Suspect]
     Active Substance: OXALIPLATIN
     Indication: PALLIATIVE CARE
  8. IRINOTECAN HCL [Suspect]
     Active Substance: IRINOTECAN HYDROCHLORIDE
     Indication: METASTASES TO LIVER
  9. CALCIUM FOLINATE [Suspect]
     Active Substance: LEUCOVORIN CALCIUM
     Indication: METASTASES TO LUNG
  10. CALCIUM FOLINATE [Suspect]
     Active Substance: LEUCOVORIN CALCIUM
     Indication: PALLIATIVE CARE
  11. OXALIPLATIN. [Suspect]
     Active Substance: OXALIPLATIN
     Indication: METASTASES TO LUNG
  12. FLUOROURACIL 5 FU [Suspect]
     Active Substance: FLUOROURACIL
     Indication: METASTASES TO LUNG
  13. OXALIPLATIN. [Suspect]
     Active Substance: OXALIPLATIN
     Indication: PANCREATIC CARCINOMA
     Dosage: 65 MG/M2, CYCLIC (65 MG/M2 ON DAY 1)
  14. CALCIUM FOLINATE [Suspect]
     Active Substance: LEUCOVORIN CALCIUM
     Indication: PANCREATIC CARCINOMA
     Dosage: 400 MG/M2, CYCLIC (400 MG/M2 ON DAY 1)
  15. CALCIUM FOLINATE [Suspect]
     Active Substance: LEUCOVORIN CALCIUM
     Indication: METASTASES TO LIVER
  16. FLUOROURACIL 5 FU [Suspect]
     Active Substance: FLUOROURACIL
     Indication: PANCREATIC CARCINOMA
     Dosage: 1000 MG/M2, CYCLIC (1,000 MG/M2 CONTINOUS INFUSION FOR 23 HOURS ON DAY 1 TO 2, EVERY 2 WEEKS)

REACTIONS (1)
  - Herpes zoster [Unknown]
